FAERS Safety Report 6055865-7 (Version None)
Quarter: 2009Q1

REPORT INFORMATION
  Report Type: 
  Country: None (occurrence: None)
  Receive Date: 20090126
  Receipt Date: 20090115
  Transmission Date: 20090719
  Serious: Yes (Other)
  Sender: FDA-Public Use
  Company Number: CERZ-1000197

PATIENT
  Age: 12 Year
  Sex: Female

DRUGS (1)
  1. CEREZYME [Suspect]
     Indication: GAUCHER'S DISEASE
     Dosage: 60 MG/KG, Q2W, INTRAVENOUS
     Route: 042
     Dates: start: 20070701

REACTIONS (2)
  - CONDITION AGGRAVATED [None]
  - FOOT DEFORMITY [None]
